FAERS Safety Report 25015485 (Version 2)
Quarter: 2025Q1

REPORT INFORMATION
  Report Type: Report from Study
  Country: US (occurrence: US)
  Receive Date: 20250227
  Receipt Date: 20250228
  Transmission Date: 20250408
  Serious: Yes (Death)
  Sender: ABBVIE
  Company Number: US-ABBVIE-6152684

PATIENT
  Age: 64 Year
  Sex: Male

DRUGS (2)
  1. DUOPA [Suspect]
     Active Substance: CARBIDOPA\LEVODOPA
     Indication: Parkinson^s disease
     Route: 050
     Dates: start: 202108
  2. DUOPA [Suspect]
     Active Substance: CARBIDOPA\LEVODOPA

REACTIONS (1)
  - Parkinson^s disease [Fatal]
